FAERS Safety Report 18135942 (Version 2)
Quarter: 2020Q3

REPORT INFORMATION
  Report Type: Report from Study
  Country: None (occurrence: US)
  Receive Date: 20200811
  Receipt Date: 20200831
  Transmission Date: 20201103
  Serious: Yes (Other)
  Sender: FDA-Public Use
  Company Number: US-ABBVIE-20K-163-3514759-00

PATIENT
  Sex: Female

DRUGS (1)
  1. RINVOQ [Suspect]
     Active Substance: UPADACITINIB
     Indication: RHEUMATOID ARTHRITIS
     Route: 048
     Dates: start: 20200227

REACTIONS (5)
  - Musculoskeletal chest pain [Unknown]
  - Breast cancer female [Unknown]
  - Bowel movement irregularity [Unknown]
  - Blood pressure measurement [Unknown]
  - Constipation [Unknown]

NARRATIVE: CASE EVENT DATE: 2020
